FAERS Safety Report 6997002-8 (Version None)
Quarter: 2010Q3

REPORT INFORMATION
  Report Type: 
  Country: None (occurrence: None)
  Receive Date: 20100918
  Receipt Date: 20090916
  Transmission Date: 20110219
  Serious: No
  Sender: FDA-Public Use
  Company Number: US-WYE-H10696109

PATIENT
  Sex: Female
  Weight: 74.91 kg

DRUGS (6)
  1. PRISTIQ [Suspect]
     Indication: MAJOR DEPRESSION
     Dosage: 50 MG EVERY 1 TOT
     Route: 048
     Dates: start: 20090819, end: 20090819
  2. CALCIUM [Concomitant]
  3. SYNTHROID [Concomitant]
  4. MULTIVITAMINS, COMBINATIONS [Concomitant]
  5. DIOVAN HCT [Concomitant]
  6. VIVELLE [Concomitant]

REACTIONS (5)
  - AMNESIA [None]
  - ANXIETY [None]
  - INSOMNIA [None]
  - THINKING ABNORMAL [None]
  - TRISMUS [None]
